FAERS Safety Report 4565666-4 (Version None)
Quarter: 2005Q1

REPORT INFORMATION
  Report Type: 
  Country: None (occurrence: None)
  Receive Date: 20050126
  Receipt Date: 20050114
  Transmission Date: 20050727
  Serious: Yes (Other)
  Sender: FDA-Public Use
  Company Number: 2005RL000004

PATIENT
  Age: 65 Year
  Sex: Female

DRUGS (4)
  1. PROPAFENONE HYDROCHLORIDE [Suspect]
     Indication: SICK SINUS SYNDROME
     Dosage: 75 + 150 MG;TID; PO SEE IMAGE
     Route: 048
     Dates: start: 20040801, end: 20041001
  2. PROPAFENONE HYDROCHLORIDE [Suspect]
     Indication: SICK SINUS SYNDROME
     Dosage: 75 + 150 MG;TID; PO SEE IMAGE
     Route: 048
     Dates: start: 20041001
  3. PROPRANOLOL [Concomitant]
  4. PROPRANOLOL [Concomitant]

REACTIONS (3)
  - DIZZINESS [None]
  - EXTRASYSTOLES [None]
  - MUSCLE TWITCHING [None]
